FAERS Safety Report 8466510-5 (Version None)
Quarter: 2012Q2

REPORT INFORMATION
  Report Type: 
  Country: None (occurrence: None)
  Receive Date: 20120626
  Receipt Date: 20120618
  Transmission Date: 20120825
  Serious: Yes (Death, Hospitalization)
  Sender: FDA-Public Use
  Company Number: JP-ACTELION-A-CH2011-55036

PATIENT
  Sex: Male
  Weight: 75 kg

DRUGS (4)
  1. OXYGEN [Concomitant]
  2. TRAMADOL HCL [Concomitant]
  3. TRACLEER [Suspect]
     Indication: PULMONARY ARTERIAL HYPERTENSION
     Dosage: 62.5 MG, QD
     Route: 048
     Dates: start: 20110902, end: 20110902
  4. TRACLEER [Suspect]
     Dosage: 62.5 MG, BID
     Route: 048
     Dates: start: 20110903, end: 20110927

REACTIONS (2)
  - INTERSTITIAL LUNG DISEASE [None]
  - CONDITION AGGRAVATED [None]
